FAERS Safety Report 13021829 (Version 1)
Quarter: 2016Q4

REPORT INFORMATION
  Report Type: Other
  Country: GB (occurrence: GB)
  Receive Date: 20161213
  Receipt Date: 20161213
  Transmission Date: 20170207
  Serious: Yes (Other)
  Sender: FDA-Public Use
  Company Number: GB-GLENMARK PHARMACEUTICALS INC, USA.-2016GMK025371

PATIENT

DRUGS (2)
  1. TELMISARTAN. [Suspect]
     Active Substance: TELMISARTAN
     Indication: HYPERTENSION
     Dosage: 200 MG, UNK
     Route: 048
  2. CORTICOSTEROID NOS [Concomitant]
     Active Substance: CORTICOSTEROID NOS
     Indication: ECZEMA
     Dosage: UNK
     Route: 065

REACTIONS (5)
  - Pruritus [Unknown]
  - Withdrawal syndrome [Unknown]
  - Palpitations [Recovered/Resolved]
  - Malaise [Recovered/Resolved]
  - Anxiety [Recovered/Resolved]
